FAERS Safety Report 8078238-4 (Version None)
Quarter: 2012Q1

REPORT INFORMATION
  Report Type: 
  Country: None (occurrence: None)
  Receive Date: 20120127
  Receipt Date: 20110109
  Transmission Date: 20120608
  Serious: No
  Sender: FDA-Public Use
  Company Number: US-ABBOTT-11P-163-0696239-00

PATIENT
  Age: 68 Year
  Sex: Female

DRUGS (14)
  1. HUMIRA [Suspect]
     Indication: RHEUMATOID ARTHRITIS
     Dates: start: 20101201
  2. NEXIUM [Concomitant]
     Indication: GASTROOESOPHAGEAL REFLUX DISEASE
  3. LASIX [Concomitant]
     Indication: OEDEMA
  4. CLONIPINE [Concomitant]
     Indication: INSOMNIA
     Dosage: AT BEDTIME
  5. K [Concomitant]
     Indication: ELECTROLYTE SUBSTITUTION THERAPY
  6. NEURONTIN [Concomitant]
     Indication: NEUROPATHY PERIPHERAL
  7. VICODIN [Concomitant]
     Indication: PAIN
     Dosage: 7.5/500
  8. ACETAMINOPHEN [Concomitant]
     Indication: PAIN
  9. TRAVATIN-Z [Concomitant]
     Indication: GLAUCOMA
     Dosage: 1 DROP EACH EYE
  10. SYNTHROID [Concomitant]
     Indication: HYPOTHYROIDISM
  11. PREDNISONE [Concomitant]
     Indication: RHEUMATOID ARTHRITIS
  12. CELEXA [Concomitant]
     Indication: ANXIETY
  13. COMBIGAN [Concomitant]
     Indication: GLAUCOMA
     Dosage: IN EACH EYE
  14. PROBIOTIC VSL #3 [Concomitant]
     Indication: PRODUCT USED FOR UNKNOWN INDICATION

REACTIONS (2)
  - OROPHARYNGEAL PAIN [None]
  - DYSPHAGIA [None]
